FAERS Safety Report 9752663 (Version 1)
Quarter: 2013Q4

REPORT INFORMATION
  Report Type: Spontaneous
  Country: US (occurrence: US)
  Receive Date: 20131213
  Receipt Date: 20131213
  Transmission Date: 20140711
  Serious: No
  Sender: FDA-Public Use
  Company Number: US-BAYER-2013-152206

PATIENT
  Age: 78 Year
  Sex: Female
  Weight: 77.1 kg

DRUGS (9)
  1. ALEVE CAPLET [Suspect]
     Indication: PAIN PROPHYLAXIS
     Dosage: 1 DF, QD
     Route: 048
  2. ALTACE [Concomitant]
  3. CRESTOR [Concomitant]
  4. JANUMET [Concomitant]
  5. PREDNISONE [Concomitant]
  6. CALTRATE [CALCIUM CARBONATE] [Concomitant]
  7. CENTRUM [Concomitant]
  8. ECOTRIN [Concomitant]
  9. TYLENOL [PARACETAMOL] [Concomitant]

REACTIONS (3)
  - Constipation [Not Recovered/Not Resolved]
  - Incorrect drug administration duration [None]
  - Off label use [None]
